FAERS Safety Report 25092783 (Version 2)
Quarter: 2025Q2

REPORT INFORMATION
  Report Type: Spontaneous
  Country: AU (occurrence: AU)
  Receive Date: 20250319
  Receipt Date: 20250403
  Transmission Date: 20250717
  Serious: Yes (Other)
  Sender: AMGEN
  Company Number: AU-AMGEN-AUSSP2025048686

PATIENT
  Age: 57 Year
  Sex: Female

DRUGS (9)
  1. ARANESP [Suspect]
     Active Substance: DARBEPOETIN ALFA
     Indication: Haemoglobin decreased
     Dosage: UNK, QWK, (ROUTE: UPPER THIGH)
     Route: 065
  2. HUMIRA [Concomitant]
     Active Substance: ADALIMUMAB
  3. PREDNISONE [Concomitant]
     Active Substance: PREDNISONE
  4. RAMIPRIL [Concomitant]
     Active Substance: RAMIPRIL
  5. CRESTOR [Concomitant]
     Active Substance: ROSUVASTATIN CALCIUM
  6. METOPROLOL [Concomitant]
     Active Substance: METOPROLOL
  7. DOCUSATE SODIUM\SENNOSIDE B [Concomitant]
     Active Substance: DOCUSATE SODIUM\SENNOSIDE B
  8. LOKELMA [Concomitant]
     Active Substance: SODIUM ZIRCONIUM CYCLOSILICATE
  9. CALCITRIOL [Concomitant]
     Active Substance: CALCITRIOL

REACTIONS (3)
  - Rheumatoid arthritis [Unknown]
  - Wrong technique in product usage process [Unknown]
  - Intercepted product administration error [Unknown]

NARRATIVE: CASE EVENT DATE: 20250308
